FAERS Safety Report 5520514-0 (Version None)
Quarter: 2007Q4

REPORT INFORMATION
  Report Type: 
  Country: None (occurrence: None)
  Receive Date: 20071119
  Receipt Date: 20071107
  Transmission Date: 20080405
  Serious: Yes (Other)
  Sender: FDA-Public Use
  Company Number: US-PFIZER INC-2007042922

PATIENT
  Sex: Male
  Weight: 100.7 kg

DRUGS (4)
  1. VIAGRA [Suspect]
     Indication: ERECTILE DYSFUNCTION
  2. TOPROL-XL [Concomitant]
  3. BENICAR [Concomitant]
  4. AVANDAMET [Concomitant]

REACTIONS (9)
  - BLINDNESS [None]
  - MACULAR OEDEMA [None]
  - OPTIC ATROPHY [None]
  - OPTIC DISC DISORDER [None]
  - OPTIC ISCHAEMIC NEUROPATHY [None]
  - OPTIC NEURITIS [None]
  - PAPILLOEDEMA [None]
  - VISION BLURRED [None]
  - VISUAL ACUITY REDUCED [None]
